FAERS Safety Report 4802802-6 (Version None)
Quarter: 2005Q4

REPORT INFORMATION
  Report Type: 
  Country: None (occurrence: None)
  Receive Date: 20051017
  Receipt Date: 20051017
  Transmission Date: 20060501
  Serious: Yes (Hospitalization, Other)
  Sender: FDA-Public Use
  Company Number: None

PATIENT
  Sex: Female
  Weight: 68 kg

DRUGS (2)
  1. METHOTREXATE [Suspect]
     Indication: GLIOBLASTOMA MULTIFORME
     Dosage: TOTAL DOSE 100750 MG
     Dates: start: 20050727, end: 20051011
  2. LEUCOVORIN CALCIUM [Suspect]
     Dosage: TOTAL DOSE 1325
     Dates: start: 20050727, end: 20051001

REACTIONS (1)
  - DEEP VEIN THROMBOSIS [None]
